FAERS Safety Report 7024117-0 (Version None)
Quarter: 2010Q4

REPORT INFORMATION
  Report Type: 
  Country: None (occurrence: None)
  Receive Date: 20101001
  Receipt Date: 20100924
  Transmission Date: 20110411
  Serious: Yes (Other)
  Sender: FDA-Public Use
  Company Number: BR-ROCHE-716424

PATIENT
  Sex: Male
  Weight: 76 kg

DRUGS (4)
  1. BONIVA [Suspect]
     Indication: OSTEOPOROSIS
     Route: 048
     Dates: start: 20100717
  2. CALTRATE 600 + D [Concomitant]
     Dosage: DOSE: 1500 MG+200 IU, IN THE MORNING AND AT NIGHT
     Dates: start: 20100717
  3. METFORMIN HYDROCHLORIDE [Concomitant]
     Dosage: FREQ: ONCE  A DAY AT NIGHT
     Dates: start: 20080101
  4. SIMVASTATIN [Concomitant]
     Dosage: ONCE A DAY AT NIGHT
     Dates: start: 20080101

REACTIONS (8)
  - BACK PAIN [None]
  - DRUG ADMINISTRATION ERROR [None]
  - INFLUENZA LIKE ILLNESS [None]
  - INTERVERTEBRAL DISC PROTRUSION [None]
  - MALAISE [None]
  - MUSCULOSKELETAL PAIN [None]
  - NAUSEA [None]
  - PAIN [None]
